FAERS Safety Report 11055153 (Version 1)
Quarter: 2015Q2

REPORT INFORMATION
  Report Type: Spontaneous
  Country: US (occurrence: US)
  Receive Date: 20150422
  Receipt Date: 20150422
  Transmission Date: 20150821
  Serious: No
  Sender: FDA-Public Use
  Company Number: US-SA-2014SA169057

PATIENT
  Age: 64 Year
  Sex: Female

DRUGS (3)
  1. HEPARIN [Concomitant]
     Active Substance: HEPARIN SODIUM
     Dates: end: 2014
  2. LOVENOX [Suspect]
     Active Substance: ENOXAPARIN SODIUM
     Indication: THROMBOSIS PROPHYLAXIS
     Route: 065
     Dates: start: 20141203
  3. DILAUDID [Concomitant]
     Active Substance: HYDROMORPHONE HYDROCHLORIDE
     Dosage: PAIN PUMP

REACTIONS (3)
  - Asthenia [Unknown]
  - Fatigue [Unknown]
  - Somnolence [Unknown]

NARRATIVE: CASE EVENT DATE: 201412
